FAERS Safety Report 4376210-9 (Version None)
Quarter: 2004Q2

REPORT INFORMATION
  Report Type: 
  Country: None (occurrence: None)
  Receive Date: 20040610
  Receipt Date: 20040217
  Transmission Date: 20050107
  Serious: Yes (Other)
  Sender: FDA-Public Use
  Company Number: 7486

PATIENT
  Age: 70 Year
  Sex: Male

DRUGS (4)
  1. TAXOL [Suspect]
     Indication: NON-SMALL CELL LUNG CANCER
     Dosage: 360 MG Q3W IV
     Route: 042
  2. ONXOL [Suspect]
     Indication: NON-SMALL CELL LUNG CANCER
     Dosage: 360 MG Q3W IV
     Route: 042
  3. PACLITAXEL [Suspect]
     Indication: NON-SMALL CELL LUNG CANCER
     Dosage: 360 MG Q3W IV
     Route: 042
  4. FRAGMIN [Concomitant]

REACTIONS (7)
  - ERYTHEMA [None]
  - FEELING HOT [None]
  - HYPOAESTHESIA [None]
  - INJECTION SITE REACTION [None]
  - OEDEMA PERIPHERAL [None]
  - PAIN IN EXTREMITY [None]
  - SKIN REACTION [None]
